FAERS Safety Report 20728505 (Version 4)
Quarter: 2022Q2

REPORT INFORMATION
  Report Type: Spontaneous
  Country: SG (occurrence: SG)
  Receive Date: 20220420
  Receipt Date: 20220628
  Transmission Date: 20220721
  Serious: Yes (Hospitalization, Other)
  Sender: FDA-Public Use
  Company Number: SG-009507513-2204SGP005834

PATIENT
  Age: 62 Year
  Sex: Female
  Weight: 45.1 kg

DRUGS (7)
  1. KEYTRUDA [Suspect]
     Active Substance: PEMBROLIZUMAB
     Indication: Peritoneal mesothelioma malignant
     Dosage: 200 MILLIGRAM, ONCE IN EVERY THREE WEEKS
     Route: 042
     Dates: start: 20220311, end: 20220328
  2. KEYTRUDA [Suspect]
     Active Substance: PEMBROLIZUMAB
     Dosage: 200 MILLIGRAM, ONCE IN EVERY THREE WEEKS
     Route: 042
     Dates: start: 20220414
  3. CEBPA-51 FREE ACID [Suspect]
     Active Substance: CEBPA-51 FREE ACID
     Indication: Peritoneal mesothelioma malignant
     Dosage: 130 MILLIGRAM/SQ. METER, ONCE IN A WEEK
     Route: 042
     Dates: start: 20220310, end: 20220328
  4. CEBPA-51 FREE ACID [Suspect]
     Active Substance: CEBPA-51 FREE ACID
     Dosage: 130 MILLIGRAM/SQ. METER, ONCE IN A WEEK
     Route: 042
     Dates: start: 20220413
  5. DEXAMETHASONE PHOSPHATE [Concomitant]
     Active Substance: DEXAMETHASONE PHOSPHATE
  6. CETIRIZINE HCL [Concomitant]
     Active Substance: CETIRIZINE HYDROCHLORIDE
  7. VENTOLIN [Concomitant]
     Active Substance: ALBUTEROL SULFATE
     Indication: Chronic obstructive pulmonary disease
     Dosage: INHALER
     Dates: start: 20220215

REACTIONS (7)
  - Urinary tract infection [Unknown]
  - Pneumonia [Recovered/Resolved]
  - Sepsis [Recovered/Resolved]
  - Ascites [Unknown]
  - Escherichia urinary tract infection [Recovered/Resolved]
  - Tumour associated fever [Recovered/Resolved]
  - Product use in unapproved indication [Unknown]

NARRATIVE: CASE EVENT DATE: 20220101
